FAERS Safety Report 6417563-7 (Version None)
Quarter: 2009Q4

REPORT INFORMATION
  Report Type: 
  Country: None (occurrence: None)
  Receive Date: 20091023
  Receipt Date: 20091013
  Transmission Date: 20100525
  Serious: Yes (Death)
  Sender: FDA-Public Use
  Company Number: ADR36322009

PATIENT
  Age: 80 Year
  Sex: Female

DRUGS (6)
  1. SIMVASTATIN [Suspect]
     Indication: RENAL FAILURE CHRONIC
     Dosage: 40MG
     Dates: start: 20070419, end: 20070524
  2. ADCAL-D3 [Concomitant]
  3. ALENDRONATE SODIUM [Concomitant]
  4. AMITRIPTYLINE [Concomitant]
  5. CO-CODAMOL [Concomitant]
  6. OMEPRAZOLE [Concomitant]

REACTIONS (1)
  - ACUTE MYOCARDIAL INFARCTION [None]
